FAERS Safety Report 7028859-2 (Version None)
Quarter: 2010Q4

REPORT INFORMATION
  Report Type: 
  Country: None (occurrence: None)
  Receive Date: 20101005
  Receipt Date: 20100930
  Transmission Date: 20110411
  Serious: Yes (Life-Threatening, Hospitalization)
  Sender: FDA-Public Use
  Company Number: PL-BRISTOL-MYERS SQUIBB COMPANY-15202096

PATIENT
  Age: 44 Year
  Sex: Male

DRUGS (3)
  1. ARIPIPRAZOLE [Suspect]
     Indication: SCHIZOPHRENIA
     Dosage: 29JUN-05JL10 DOSE:5MG;06JL-12JL10 DS:10MG,THERPDT:7DY;13JL-14JL10 DS:20MG,TD:2DY.INTERPD 15JUL10
     Dates: start: 20100629, end: 20100715
  2. LORAZEPAM [Concomitant]
     Dates: start: 20100711, end: 20100712
  3. OLANZAPINE [Concomitant]
     Dates: start: 20100610, end: 20100714

REACTIONS (4)
  - ACUTE RESPIRATORY FAILURE [None]
  - COMA [None]
  - PSYCHOTIC DISORDER [None]
  - SUICIDE ATTEMPT [None]
